FAERS Safety Report 4478508-2 (Version None)
Quarter: 2004Q4

REPORT INFORMATION
  Report Type: 
  Country: None (occurrence: None)
  Receive Date: 20041018
  Receipt Date: 20041012
  Transmission Date: 20050328
  Serious: No
  Sender: FDA-Public Use
  Company Number: 2004UW17707

PATIENT
  Age: 56 Year
  Sex: Female

DRUGS (2)
  1. CRESTOR [Suspect]
     Dosage: 10 MG PO
     Route: 048
     Dates: start: 20040701
  2. CRESTOR [Suspect]
     Dosage: 10 MG PO
     Route: 048

REACTIONS (3)
  - BLINDNESS [None]
  - CONDITION AGGRAVATED [None]
  - DIABETES MELLITUS [None]
